FAERS Safety Report 23599312 (Version 3)
Quarter: 2024Q1

REPORT INFORMATION
  Report Type: Report from Study
  Country: US (occurrence: US)
  Receive Date: 20240306
  Receipt Date: 20240320
  Transmission Date: 20240410
  Serious: Yes (Hospitalization, Other)
  Sender: FDA-Public Use
  Company Number: US-ABBVIE-5576163

PATIENT
  Sex: Female

DRUGS (3)
  1. VENCLEXTA [Suspect]
     Active Substance: VENETOCLAX
     Indication: Product used for unknown indication
     Route: 048
     Dates: start: 20240309
  2. IMBRUVICA [Suspect]
     Active Substance: IBRUTINIB
     Indication: Chronic lymphocytic leukaemia
     Dosage: DOSE DECREASED?FORM STRENGTH: 280MG
     Route: 048
  3. IMBRUVICA [Suspect]
     Active Substance: IBRUTINIB
     Indication: Chronic lymphocytic leukaemia
     Dosage: FORM STRENGTH: 280MG
     Route: 048

REACTIONS (13)
  - Contusion [Not Recovered/Not Resolved]
  - Insomnia [Unknown]
  - Pruritus [Unknown]
  - Blister [Unknown]
  - Muscle spasms [Unknown]
  - Erythema [Unknown]
  - Skin exfoliation [Unknown]
  - Cellulitis [Unknown]
  - Rash papular [Unknown]
  - Spinal cord disorder [Unknown]
  - Arthralgia [Unknown]
  - Decreased appetite [Unknown]
  - Trigger finger [Unknown]
